FAERS Safety Report 8049472-4 (Version None)
Quarter: 2012Q1

REPORT INFORMATION
  Report Type: 
  Country: None (occurrence: None)
  Receive Date: 20120117
  Receipt Date: 20120113
  Transmission Date: 20120608
  Serious: Yes (Disabling, Other)
  Sender: FDA-Public Use
  Company Number: US-PFIZER INC-2012011026

PATIENT
  Sex: Female
  Weight: 122 kg

DRUGS (12)
  1. LOSARTAN POTASSIUM [Concomitant]
     Dosage: 100/25 MG, DAILY
  2. CARTIA XT [Concomitant]
     Dosage: 240 MG, DAILY
  3. LYRICA [Concomitant]
     Dosage: 150 MG TWO TIMES A DAY
  4. HYDROCODONE [Concomitant]
     Dosage: 5/500 MG DAILY OR TWO TIMES A DAY
  5. LIPITOR [Suspect]
     Indication: BLOOD CHOLESTEROL INCREASED
     Dosage: 80 MG, DAILY
     Route: 048
  6. NOVOLIN 70/30 [Concomitant]
     Dosage: UNK, TWO TIMES A DAY
  7. QUERCETIN [Concomitant]
     Dosage: 10 MG, DAILY
  8. METFORMIN [Concomitant]
     Dosage: 1000 MG TWO TIMES A DAY
  9. JANUVIA [Concomitant]
     Dosage: 100 MG, DAILY
  10. LANSOPRAZOLE [Concomitant]
     Dosage: 30 MG, DAILY
  11. FLAVOXATE [Concomitant]
     Dosage: 100 MG THREE TIMES A DAY
  12. CYCLOBENZAPRINE HYDROCHLORIDE [Concomitant]
     Dosage: 10 MG DAILY OR TWO TIMES A DAY

REACTIONS (3)
  - DIABETIC AMYOTROPHY [None]
  - CHRONIC INFLAMMATORY DEMYELINATING POLYRADICULONEUROPATHY [None]
  - MELANOSIS COLI [None]
